FAERS Safety Report 6153533-4 (Version None)
Quarter: 2009Q2

REPORT INFORMATION
  Report Type: 
  Country: None (occurrence: None)
  Receive Date: 20090413
  Receipt Date: 20090403
  Transmission Date: 20091009
  Serious: Yes (Other)
  Sender: FDA-Public Use
  Company Number: PHEH2007US05478

PATIENT
  Sex: Female
  Weight: 56.236 kg

DRUGS (13)
  1. ZOMETA [Suspect]
     Indication: OSTEOPENIA
     Dosage: MONTHLY
     Route: 042
  2. AREDIA [Suspect]
  3. FOSAMAX [Suspect]
     Indication: OSTEOPOROSIS
     Dosage: 10 MG
     Dates: start: 19970507
  4. FLUOXETINE [Concomitant]
     Dosage: 40 MG DAILY
  5. MULTI-VITAMINS [Concomitant]
  6. FISH OIL [Concomitant]
  7. EVISTA [Concomitant]
     Dosage: 60 MG DAILY
     Dates: start: 20071101
  8. CHANTIX [Concomitant]
  9. CALTRATE 600 + VITAMIN D [Concomitant]
     Dosage: 1 TABLET TWICE DAILY
  10. CLONAZEPAM [Concomitant]
     Dosage: 0.5 MG THREE TIMES DAILY
  11. SPORANOX [Concomitant]
     Dosage: 2 CAPS TWICE DAILY
  12. NYSTATIN [Concomitant]
     Dosage: THREE TIMES DAILY
  13. PROZAC [Concomitant]
     Dosage: 40 MG DAILY

REACTIONS (19)
  - ANXIETY [None]
  - CARPAL TUNNEL SYNDROME [None]
  - CERVICOBRACHIAL SYNDROME [None]
  - DENTAL IMPLANTATION [None]
  - GAMMOPATHY [None]
  - HYPOAESTHESIA [None]
  - IMPAIRED HEALING [None]
  - INJURY [None]
  - INTERVERTEBRAL DISC PROTRUSION [None]
  - MUSCLE SPASMS [None]
  - NECK PAIN [None]
  - NUCLEAR MAGNETIC RESONANCE IMAGING ABNORMAL [None]
  - OSTEONECROSIS [None]
  - OSTEOPENIA [None]
  - PAIN [None]
  - PAIN IN EXTREMITY [None]
  - PARAESTHESIA [None]
  - PARAPROTEINAEMIA [None]
  - TOOTH LOSS [None]
